FAERS Safety Report 26186519 (Version 1)
Quarter: 2025Q4

REPORT INFORMATION
  Report Type: Report from Study
  Country: US (occurrence: US)
  Receive Date: 20251222
  Receipt Date: 20251222
  Transmission Date: 20260117
  Serious: Yes (Disabling, Other)
  Sender: ABBVIE
  Company Number: US-ABBVIE-6600580

PATIENT
  Sex: Female

DRUGS (1)
  1. LUMIGAN [Suspect]
     Active Substance: BIMATOPROST
     Indication: Product used for unknown indication
     Dosage: 1 DROP EACH EYE EVERY NIGHT, FORM STRENGTH: 0.01 PERCENT, ROA: OPHTHALMIC
     Route: 065

REACTIONS (2)
  - Disability [Unknown]
  - Eye operation [Unknown]
